FAERS Safety Report 25742899 (Version 1)
Quarter: 2025Q3

REPORT INFORMATION
  Report Type: Spontaneous
  Country: CN (occurrence: CN)
  Receive Date: 20250830
  Receipt Date: 20250830
  Transmission Date: 20251021
  Serious: Yes (Other)
  Sender: ACCORD
  Company Number: None

PATIENT
  Age: 60 Year
  Sex: Female
  Weight: 75 kg

DRUGS (7)
  1. TRASTUZUMAB [Suspect]
     Active Substance: TRASTUZUMAB
     Indication: HER2 positive breast cancer
     Dosage: STRENGTH: 150 MILLIGRAM?600 MILLIGRAM, QD
     Route: 042
     Dates: start: 20250731, end: 20250731
  2. PERTUZUMAB [Suspect]
     Active Substance: PERTUZUMAB
     Indication: Breast cancer stage III
     Dosage: 28 MILLILITER, QD
     Route: 042
     Dates: start: 20250731, end: 20250731
  3. CARBOPLATIN [Suspect]
     Active Substance: CARBOPLATIN
     Indication: Breast cancer stage III
     Dosage: 670 MILLIGRAM, QD
     Route: 042
     Dates: start: 20250731, end: 20250731
  4. DOCETAXEL [Suspect]
     Active Substance: DOCETAXEL
     Indication: Breast cancer stage III
     Dosage: 135 MILLIGRAM, QD
     Route: 042
     Dates: start: 20250731, end: 20250731
  5. DOCETAXEL [Suspect]
     Active Substance: DOCETAXEL
     Indication: HER2 positive breast cancer
     Dosage: 135 MILLIGRAM, QD
     Route: 042
     Dates: start: 20250731, end: 20250731
  6. PERTUZUMAB [Suspect]
     Active Substance: PERTUZUMAB
     Indication: HER2 positive breast cancer
     Dosage: 28 MILLILITER, QD
     Route: 042
     Dates: start: 20250731, end: 20250731
  7. CARBOPLATIN [Suspect]
     Active Substance: CARBOPLATIN
     Indication: HER2 positive breast cancer
     Dosage: 670 MILLIGRAM, QD
     Route: 042
     Dates: start: 20250731, end: 20250731

REACTIONS (2)
  - Myelosuppression [Recovered/Resolved]
  - Hyperpyrexia [Recovered/Resolved]

NARRATIVE: CASE EVENT DATE: 20250806
